FAERS Safety Report 9253591 (Version 1)
Quarter: 2013Q2

REPORT INFORMATION
  Report Type: Spontaneous
  Country: US (occurrence: US)
  Receive Date: 20130425
  Receipt Date: 20130425
  Transmission Date: 20140414
  Serious: No
  Sender: FDA-Public Use
  Company Number: US-BIOGENIDEC-2013BI036971

PATIENT
  Sex: Female

DRUGS (1)
  1. TYSABRI [Suspect]
     Indication: MULTIPLE SCLEROSIS
     Route: 042
     Dates: start: 20090119

REACTIONS (10)
  - Decreased immune responsiveness [Unknown]
  - Paralysis [Unknown]
  - Fear [Unknown]
  - Mole excision [Unknown]
  - Hyperkeratosis [Unknown]
  - Skin discolouration [Unknown]
  - Artificial crown procedure [Unknown]
  - Nausea [Unknown]
  - Influenza [Unknown]
  - Gastroenteritis norovirus [Unknown]
